FAERS Safety Report 8283397-4 (Version None)
Quarter: 2012Q2

REPORT INFORMATION
  Report Type: 
  Country: None (occurrence: None)
  Receive Date: 20120413
  Receipt Date: 20120402
  Transmission Date: 20120825
  Serious: Yes (Other)
  Sender: FDA-Public Use
  Company Number: GB-MILLENNIUM PHARMACEUTICALS, INC.-2012-00314

PATIENT

DRUGS (4)
  1. FENTANYL [Concomitant]
     Indication: PAIN
     Dosage: 25 UG, UNK
     Dates: start: 20101124
  2. GABAPENTIN [Concomitant]
     Indication: PAIN
     Dosage: 200 MG, UNK
     Route: 048
     Dates: start: 20110404
  3. ACETAMINOPHEN [Concomitant]
     Indication: PAIN
     Dosage: 1 G, UNK
     Route: 048
     Dates: start: 20111228
  4. VELCADE [Suspect]
     Indication: MULTIPLE MYELOMA
     Dosage: 1.3 MG/M2, UNK
     Route: 065
     Dates: start: 20111205

REACTIONS (1)
  - BLOOD ALKALINE PHOSPHATASE INCREASED [None]
